FAERS Safety Report 18898622 (Version 1)
Quarter: 2021Q1

REPORT INFORMATION
  Report Type: Spontaneous
  Country: FR (occurrence: FR)
  Receive Date: 20210216
  Receipt Date: 20210216
  Transmission Date: 20210420
  Serious: Yes (Other)
  Sender: FDA-Public Use
  Company Number: FR-ROCHE-2769974

PATIENT
  Age: 4 Month
  Sex: Male

DRUGS (16)
  1. GENTAMICINE [Concomitant]
     Active Substance: GENTAMICIN
  2. KEPPRA [Concomitant]
     Active Substance: LEVETIRACETAM
  3. MIDAZOLAM. [Concomitant]
     Active Substance: MIDAZOLAM
  4. VANCOMYCINE [Concomitant]
     Active Substance: VANCOMYCIN
  5. HEPARIN [Concomitant]
     Active Substance: HEPARIN SODIUM
  6. PHENYTOINE [Concomitant]
     Active Substance: PHENYTOIN
  7. TAZOCILLINE [Concomitant]
     Active Substance: PIPERACILLIN SODIUM\TAZOBACTAM SODIUM
  8. KETAMINE [Concomitant]
     Active Substance: KETAMINE
  9. PYRIDOXINE [Concomitant]
     Active Substance: PYRIDOXINE
  10. TEGRETOL [Suspect]
     Active Substance: CARBAMAZEPINE
     Indication: STATUS EPILEPTICUS
     Route: 048
     Dates: start: 20210125, end: 20210129
  11. THIOPENTAL SODIUM. [Suspect]
     Active Substance: THIOPENTAL SODIUM
     Indication: STATUS EPILEPTICUS
     Route: 041
     Dates: start: 20210121, end: 20210126
  12. CEFOTAXIME [Concomitant]
     Active Substance: CEFOTAXIME SODIUM
  13. HYDROCORTISONE HEMISUCCINATE [Concomitant]
     Active Substance: HYDROCORTISONE HEMISUCCINATE
  14. RIVOTRIL [Suspect]
     Active Substance: CLONAZEPAM
     Indication: STATUS EPILEPTICUS
     Route: 041
     Dates: start: 20210125
  15. FENTANYL. [Concomitant]
     Active Substance: FENTANYL
  16. GARDENAL [Concomitant]
     Active Substance: PHENOBARBITAL

REACTIONS (2)
  - Thrombocytopenia [Not Recovered/Not Resolved]
  - Haemolytic anaemia [Not Recovered/Not Resolved]

NARRATIVE: CASE EVENT DATE: 20210129
